FAERS Safety Report 6399300-8 (Version None)
Quarter: 2009Q4

REPORT INFORMATION
  Report Type: 
  Country: None (occurrence: None)
  Receive Date: 20091014
  Receipt Date: 20070618
  Transmission Date: 20100525
  Serious: Yes (Other)
  Sender: FDA-Public Use
  Company Number: US-ASTRAZENECA-2006UW09103

PATIENT
  Age: 29 Year
  Sex: Female
  Weight: 81 kg

DRUGS (23)
  1. SEROQUEL [Suspect]
     Indication: BIPOLAR DISORDER
     Route: 048
     Dates: start: 19990101
  2. SEROQUEL [Suspect]
     Dosage: 100 MG - 800 MG
     Route: 048
     Dates: start: 20010529
  3. RISPERDAL [Suspect]
     Dosage: 1 MG - 3 MG
     Dates: start: 19981015
  4. ZYPREXA [Suspect]
     Indication: DEPRESSION
     Dosage: 2.5 MG - 15 MG
     Dates: start: 20010501
  5. ABILIFY [Concomitant]
  6. GEODON [Concomitant]
  7. HALDOL [Concomitant]
  8. THORAZINE [Concomitant]
  9. IMITREX [Concomitant]
     Indication: MIGRAINE
     Dosage: 100 MG PRN
     Dates: start: 20001019
  10. DEPAKOTE [Concomitant]
     Indication: CONVULSION
     Dosage: 400 MG - 1500 MG
     Dates: start: 20010529
  11. DEPAKOTE [Concomitant]
     Indication: BIPOLAR DISORDER
     Dosage: 400 MG - 1500 MG
     Dates: start: 20010529
  12. FIORINAL [Concomitant]
     Indication: HEADACHE
     Dosage: AS NECESSARY
     Dates: start: 20001015
  13. CODEINE [Concomitant]
     Indication: HEADACHE
     Dosage: AS NECESSARY
     Dates: start: 20001015
  14. PHENYTOIN [Concomitant]
     Dosage: 30 MG - 100 MG
     Dates: start: 20000616
  15. GABAPENTIN [Concomitant]
     Dosage: 100 MG - 300 MG
     Dates: start: 20000616
  16. XENICAL [Concomitant]
     Dosage: 1 T.I.D.
     Dates: start: 20040309
  17. ZOLPIDEM [Concomitant]
     Dates: start: 20000617
  18. EFFEXOR XR [Concomitant]
     Dosage: 50 MG - 175 MG
     Dates: start: 19981015
  19. ZOLOFT [Concomitant]
     Dosage: 25 MG - 50 MG
     Dates: start: 19950722
  20. TRAZODONE [Concomitant]
     Dates: start: 20000619
  21. FLONASE [Concomitant]
     Indication: SINUS DISORDER
     Route: 045
     Dates: start: 20040309
  22. GUAIFENESIN [Concomitant]
     Dates: start: 20040309
  23. NASACORT AQ [Concomitant]
     Dosage: TWO SPRAYS EACH NOSTRIL ONCE DAILY
     Dates: start: 20001019

REACTIONS (4)
  - DIABETES MELLITUS [None]
  - NEUROPATHY PERIPHERAL [None]
  - TYPE 2 DIABETES MELLITUS [None]
  - WEIGHT INCREASED [None]
